FAERS Safety Report 6053935-0 (Version None)
Quarter: 2009Q1

REPORT INFORMATION
  Report Type: 
  Country: None (occurrence: None)
  Receive Date: 20090127
  Receipt Date: 20090120
  Transmission Date: 20090719
  Serious: Yes (Hospitalization)
  Sender: FDA-Public Use
  Company Number: FR-BAYER-200911808GPV

PATIENT
  Age: 66 Year
  Sex: Male

DRUGS (3)
  1. FLUDARA [Suspect]
     Dates: start: 20080901
  2. MABTHERA [Suspect]
     Route: 042
     Dates: start: 20080901
  3. ENDOXAN [Suspect]
     Route: 048
     Dates: start: 20080901

REACTIONS (2)
  - CONDITION AGGRAVATED [None]
  - PARAESTHESIA [None]
